FAERS Safety Report 23222358 (Version 2)
Quarter: 2023Q4

REPORT INFORMATION
  Report Type: Spontaneous
  Country: RU (occurrence: RU)
  Receive Date: 20231123
  Receipt Date: 20231205
  Transmission Date: 20240110
  Serious: Yes (Other)
  Sender: FDA-Public Use
  Company Number: RU-GLAXOSMITHKLINE-RUCH2023EME057065

PATIENT

DRUGS (2)
  1. IBUPROFEN [Suspect]
     Active Substance: IBUPROFEN
     Indication: Viral infection
     Dosage: UNK
  2. NIMESULIDE [Suspect]
     Active Substance: NIMESULIDE
     Indication: Viral infection
     Dosage: UNK

REACTIONS (5)
  - Colitis ulcerative [Unknown]
  - Haematochezia [Unknown]
  - Pain [Unknown]
  - Frequent bowel movements [Unknown]
  - Product use issue [Unknown]
